FAERS Safety Report 6477597-3 (Version None)
Quarter: 2009Q4

REPORT INFORMATION
  Report Type: 
  Country: None (occurrence: None)
  Receive Date: 20091203
  Receipt Date: 20091203
  Transmission Date: 20100525
  Serious: Yes (Disabling)
  Sender: FDA-Public Use
  Company Number: None

PATIENT
  Age: 54 Year
  Sex: Female
  Weight: 60.782 kg

DRUGS (2)
  1. BOTOX [Suspect]
     Indication: BLEPHAROSPASM
     Dosage: UNK
  2. BOTOX [Suspect]
     Indication: FACIAL SPASM
     Dosage: UNK

REACTIONS (7)
  - ACTIVITIES OF DAILY LIVING IMPAIRED [None]
  - EYELID PTOSIS [None]
  - IMPAIRED DRIVING ABILITY [None]
  - OCULAR SURFACE DISEASE [None]
  - PERIORBITAL HAEMATOMA [None]
  - VISION BLURRED [None]
  - VISUAL IMPAIRMENT [None]
